FAERS Safety Report 5782810-1 (Version None)
Quarter: 2008Q2

REPORT INFORMATION
  Report Type: 
  Country: None (occurrence: None)
  Receive Date: 20080619
  Receipt Date: 20080619
  Transmission Date: 20081010
  Serious: Yes (Other)
  Sender: FDA-Public Use
  Company Number: None

PATIENT
  Sex: Female
  Weight: 74.8435 kg

DRUGS (1)
  1. LEVOTHYROXINE SODIUM [Suspect]
     Indication: HYPOTHYROIDISM
     Dosage: 1 TABLET ONCE A DAY
     Dates: start: 20080417, end: 20080521

REACTIONS (6)
  - DIZZINESS [None]
  - PARAESTHESIA [None]
  - PARAESTHESIA ORAL [None]
  - REACTION TO DRUG EXCIPIENTS [None]
  - SENSATION OF HEAVINESS [None]
  - THINKING ABNORMAL [None]
